FAERS Safety Report 5800292-8 (Version None)
Quarter: 2008Q3

REPORT INFORMATION
  Report Type: 
  Country: None (occurrence: None)
  Receive Date: 20080701
  Receipt Date: 20080616
  Transmission Date: 20090109
  Serious: Yes (Hospitalization, Other)
  Sender: FDA-Public Use
  Company Number: 2008AL007114

PATIENT
  Age: 94 Year
  Sex: Female

DRUGS (1)
  1. DIGOXIN [Suspect]
     Dosage: 0.125MG, QD, PO
     Route: 048
     Dates: start: 20080201, end: 20080501

REACTIONS (5)
  - ANOREXIA [None]
  - CEREBROVASCULAR ACCIDENT [None]
  - DEPRESSION [None]
  - DYSPNOEA [None]
  - MEMORY IMPAIRMENT [None]
